FAERS Safety Report 5780276 (Version 5)
Quarter: 2020Q3

REPORT INFORMATION
  Report Type: Report from Study
  Country: GB (occurrence: GB)
  Receive Date: 20050422
  Receipt Date: 20060403
  Transmission Date: 20201104
  Serious: Yes (Death, Life-Threatening, Hospitalization, Disabling)
  Sender: FDA-Public Use
  Company Number: GB-JNJFOC-20050402550

PATIENT
  Age: 55 Year
  Sex: Male

DRUGS (10)
  1. REOPRO [Suspect]
     Active Substance: ABCIXIMAB
     Route: 042
  2. ADENOSINE. [Concomitant]
     Active Substance: ADENOSINE
     Route: 042
  3. PARACETAMOL [Concomitant]
     Active Substance: ACETAMINOPHEN
     Route: 054
  4. SALBUTAMOL [Concomitant]
     Route: 055
  5. LISINOPRIL. [Concomitant]
     Active Substance: LISINOPRIL
     Route: 048
  6. REOPRO [Suspect]
     Active Substance: ABCIXIMAB
     Route: 042
  7. IPRATROPIUM [Concomitant]
     Active Substance: IPRATROPIUM
     Route: 055
  8. ASPIRIN. [Concomitant]
     Active Substance: ASPIRIN
     Route: 054
  9. HYDROCORTISONE. [Concomitant]
     Active Substance: HYDROCORTISONE
     Route: 042
  10. ADENOSINE. [Concomitant]
     Active Substance: ADENOSINE
     Route: 042

REACTIONS (1)
  - Haemorrhagic transformation stroke [Fatal]

NARRATIVE: CASE EVENT DATE: 20050411
